FAERS Safety Report 5920361-1 (Version None)
Quarter: 2008Q4

REPORT INFORMATION
  Report Type: 
  Country: None (occurrence: None)
  Receive Date: 20081016
  Receipt Date: 20081007
  Transmission Date: 20090506
  Serious: Yes (Other)
  Sender: FDA-Public Use
  Company Number: PHHY2008FR24279

PATIENT
  Age: 66 Year
  Sex: Male

DRUGS (8)
  1. VOLTAREN [Suspect]
     Indication: TENDONITIS
     Dosage: 100 MG/DAY
     Dates: start: 19980101, end: 20080701
  2. VOLTAREN [Suspect]
     Indication: PAIN IN EXTREMITY
  3. VOLTAREN [Suspect]
     Indication: ARTHROPATHY
  4. VOLTAREN [Suspect]
     Indication: PAIN IN EXTREMITY
     Dosage: UNK
     Dates: start: 20080101, end: 20080601
  5. VOLTAREN [Suspect]
     Indication: TENDONITIS
  6. VOLTAREN [Suspect]
     Indication: ARTHROPATHY
  7. PROCAINE HCL [Suspect]
     Indication: PAIN IN EXTREMITY
     Dosage: UNK
  8. CIBACALCINE [Concomitant]
     Dosage: 0.5
     Dates: start: 20080101

REACTIONS (9)
  - FALL [None]
  - HYPERTENSIVE CRISIS [None]
  - HYPOACUSIS [None]
  - POLYURIA [None]
  - STRESS [None]
  - TENDON OPERATION [None]
  - TENDON RUPTURE [None]
  - TINNITUS [None]
  - VERTIGO [None]
